FAERS Safety Report 16496548 (Version 5)
Quarter: 2020Q1

REPORT INFORMATION
  Report Type: Report from Study
  Country: US (occurrence: US)
  Receive Date: 20190628
  Receipt Date: 20200316
  Transmission Date: 20200409
  Serious: Yes (Hospitalization)
  Sender: FDA-Public Use
  Company Number: US-ACTELION-A-NJ2019-192295

PATIENT
  Sex: Female
  Weight: 73.92 kg

DRUGS (3)
  1. OPSUMIT [Suspect]
     Active Substance: MACITENTAN
     Indication: PULMONARY ARTERIAL HYPERTENSION
     Dosage: 10 MG, QD
     Route: 048
  2. TADALAFIL. [Concomitant]
     Active Substance: TADALAFIL
  3. REMODULIN [Suspect]
     Active Substance: TREPROSTINIL
     Indication: PRODUCT USED FOR UNKNOWN INDICATION
     Dosage: UNK
     Route: 065

REACTIONS (10)
  - Hepatic enzyme increased [Unknown]
  - Biliary colic [Unknown]
  - Abdominal pain upper [Unknown]
  - Nausea [Unknown]
  - Fluid retention [Unknown]
  - Malaise [Unknown]
  - Myocardial oedema [Unknown]
  - Abdominal distension [Unknown]
  - Vomiting [Unknown]
  - Oedema peripheral [Unknown]
